FAERS Safety Report 6479973-1 (Version None)
Quarter: 2009Q4

REPORT INFORMATION
  Report Type: 
  Country: None (occurrence: None)
  Receive Date: 20091208
  Receipt Date: 20091126
  Transmission Date: 20100525
  Serious: Yes (Other)
  Sender: FDA-Public Use
  Company Number: JP-SANOFI-AVENTIS-2009SA004885

PATIENT
  Sex: Male

DRUGS (13)
  1. PLAVIX [Suspect]
     Indication: MYOCARDIAL INFARCTION
     Route: 048
     Dates: start: 20081124, end: 20081124
  2. PLAVIX [Suspect]
     Route: 048
     Dates: start: 20081125
  3. ASPIRIN [Concomitant]
     Indication: MYOCARDIAL INFARCTION
     Route: 048
     Dates: start: 20081124
  4. HEPARIN [Concomitant]
     Indication: MYOCARDIAL INFARCTION
     Dosage: DOSE:12000 UNIT(S)
     Route: 042
     Dates: start: 20081124, end: 20081126
  5. MICARDIS [Concomitant]
     Indication: MYOCARDIAL INFARCTION
     Route: 048
     Dates: start: 20081125
  6. PARIET [Concomitant]
     Route: 048
     Dates: start: 20081125
  7. ITOROL [Concomitant]
     Indication: MYOCARDIAL INFARCTION
     Route: 048
     Dates: start: 20081125, end: 20091008
  8. NITOROL [Concomitant]
     Indication: MYOCARDIAL INFARCTION
     Route: 048
     Dates: start: 20081124, end: 20081124
  9. SIGMART [Concomitant]
     Indication: MYOCARDIAL INFARCTION
     Route: 048
     Dates: start: 20081125, end: 20091008
  10. ATORVASTATIN CALCIUM [Concomitant]
     Indication: HYPERLIPIDAEMIA
     Route: 048
     Dates: start: 20081125
  11. ARTIST [Concomitant]
     Indication: MYOCARDIAL INFARCTION
     Route: 048
     Dates: start: 20081125, end: 20081129
  12. ARTIST [Concomitant]
     Route: 048
     Dates: start: 20081130, end: 20081202
  13. ARTIST [Concomitant]
     Route: 048
     Dates: start: 20081203

REACTIONS (1)
  - INTRACARDIAC THROMBUS [None]
